FAERS Safety Report 14945899 (Version 12)
Quarter: 2019Q1

REPORT INFORMATION
  Report Type: Report from Study
  Country: ES (occurrence: ES)
  Receive Date: 20180529
  Receipt Date: 20190322
  Transmission Date: 20190417
  Serious: Yes (Hospitalization)
  Sender: FDA-Public Use
  Company Number: ES-ROCHE-2126223

PATIENT
  Age: 70 Year
  Sex: Female
  Weight: 65.8 kg

DRUGS (13)
  1. MYCOSTATIN [Concomitant]
     Active Substance: NYSTATIN
     Indication: STOMATITIS
     Route: 048
     Dates: start: 20180517
  2. HYDRAMINE [Concomitant]
     Active Substance: DIPHENHYDRAMINE HYDROCHLORIDE
     Indication: OEDEMA PERIPHERAL
     Route: 047
     Dates: start: 20180912
  3. ACETYLCYSTEINE. [Concomitant]
     Active Substance: ACETYLCYSTEINE
     Indication: RESPIRATORY TRACT INFECTION
     Route: 048
     Dates: start: 20181219, end: 20181226
  4. OMEPRAZOLE. [Concomitant]
     Active Substance: OMEPRAZOLE
     Route: 048
     Dates: start: 20180227
  5. ROSUVASTATIN. [Concomitant]
     Active Substance: ROSUVASTATIN
     Indication: DYSLIPIDAEMIA
     Route: 048
     Dates: start: 20160922
  6. BETAMETHASONE DIPROPIONATE. [Concomitant]
     Active Substance: BETAMETHASONE DIPROPIONATE
     Indication: DERMATITIS ACNEIFORM
     Route: 061
     Dates: start: 20180521
  7. MEGESTROL [Concomitant]
     Active Substance: MEGESTROL
     Indication: DECREASED APPETITE
     Route: 065
     Dates: start: 20180528, end: 20180604
  8. PARACETAMOL [Concomitant]
     Active Substance: ACETAMINOPHEN
     Indication: RESPIRATORY TRACT INFECTION
     Route: 048
     Dates: start: 20181213, end: 20181215
  9. COBIMETINIB. [Suspect]
     Active Substance: COBIMETINIB
     Indication: MALIGNANT MELANOMA
     Dosage: (AS PER PROTOCOL: COBIMETINIB 60 MG TABLETS ORALLY ONCE DAILY ON A 21 DAYS ON, 7 DAYS OFF SCHEDULE).
     Route: 048
     Dates: start: 20180509
  10. AUGMENTINE [Concomitant]
     Active Substance: AMOXICILLIN\CLAVULANATE POTASSIUM
     Indication: RESPIRATORY TRACT INFECTION
     Route: 048
     Dates: start: 20181213, end: 20181220
  11. ATEZOLIZUMAB. [Suspect]
     Active Substance: ATEZOLIZUMAB
     Indication: MALIGNANT MELANOMA
     Dosage: (AS PER PROTOCOL: ATEZOLIZUMAB 840 MG AS IV INFUSION ONCE IN EVERY 2 WEEKS)?MOST RECENT DOSE OF ATEZ
     Route: 042
     Dates: start: 20180509
  12. LORATADINE. [Concomitant]
     Active Substance: LORATADINE
     Indication: DERMATITIS ACNEIFORM
     Route: 048
     Dates: start: 20180521, end: 20180801
  13. IBUPROFEN. [Concomitant]
     Active Substance: IBUPROFEN
     Indication: RESPIRATORY TRACT INFECTION
     Route: 048
     Dates: start: 20181216, end: 20181218

REACTIONS (3)
  - Diarrhoea infectious [Recovered/Resolved]
  - Diarrhoea [Recovered/Resolved]
  - Diarrhoea [Recovered/Resolved]

NARRATIVE: CASE EVENT DATE: 20180510
